FAERS Safety Report 24461480 (Version 1)
Quarter: 2024Q4

REPORT INFORMATION
  Report Type: Spontaneous
  Country: SE (occurrence: SE)
  Receive Date: 20241018
  Receipt Date: 20241018
  Transmission Date: 20250114
  Serious: No
  Sender: ROCHE
  Company Number: SE-ROCHE-3564648

PATIENT
  Sex: Female

DRUGS (1)
  1. MABTHERA [Suspect]
     Active Substance: RITUXIMAB
     Indication: Multiple sclerosis
     Dosage: MABTHERA SOLUTION FOR INJECTION
     Route: 042

REACTIONS (11)
  - Off label use [Unknown]
  - Inflammatory pain [Unknown]
  - Inflammatory pain [Unknown]
  - Pollakiuria [Unknown]
  - Urinary bladder haemorrhage [Unknown]
  - Genital haemorrhage [Unknown]
  - Renal disorder [Unknown]
  - Abnormal faeces [Unknown]
  - Poor quality sleep [Unknown]
  - Fatigue [Unknown]
  - Multiple sclerosis [Unknown]
